FAERS Safety Report 7944205-1 (Version None)
Quarter: 2011Q4

REPORT INFORMATION
  Report Type: 
  Country: None (occurrence: None)
  Receive Date: 20111129
  Receipt Date: 20111117
  Transmission Date: 20120403
  Serious: Yes (Hospitalization)
  Sender: FDA-Public Use
  Company Number: US-BIOGENIDEC-2011BI044235

PATIENT
  Age: 32 Year
  Sex: Female

DRUGS (11)
  1. TYSABRI [Suspect]
     Indication: MULTIPLE SCLEROSIS
     Route: 042
     Dates: start: 20110103
  2. TERAZOSIN HCL [Concomitant]
     Indication: URINARY RETENTION
     Dates: start: 20100801
  3. BACLOFEN [Concomitant]
     Indication: MYALGIA
     Route: 048
     Dates: start: 20080101
  4. IV SLEEPING MEDICATION (NOS) [Concomitant]
     Indication: INSOMNIA
     Route: 042
     Dates: start: 20110101, end: 20110101
  5. CYMBALTA [Concomitant]
     Indication: DEPRESSION
     Route: 048
     Dates: start: 20100101
  6. CYMBALTA [Concomitant]
     Indication: NEURALGIA
     Route: 048
     Dates: start: 20100101
  7. CLONAZEPAM [Concomitant]
     Indication: STRESS
     Route: 048
     Dates: start: 20101001
  8. SLEEPING MEDICATION (NOS) [Concomitant]
     Indication: INSOMNIA
     Route: 048
     Dates: start: 20110101, end: 20110101
  9. TRAZODONE HCL [Concomitant]
     Indication: INSOMNIA
     Route: 048
     Dates: start: 20111001
  10. OXYCONTIN [Concomitant]
     Indication: MYALGIA
     Route: 048
     Dates: start: 20100101
  11. MEDICATION FOR URINARY URGENCY (NOS) [Concomitant]
     Indication: MICTURITION URGENCY
     Dates: start: 20100101

REACTIONS (13)
  - ENURESIS [None]
  - ANORGASMIA [None]
  - MICTURITION URGENCY [None]
  - BALANCE DISORDER [None]
  - DYSURIA [None]
  - CONSTIPATION [None]
  - BLOOD PRESSURE INCREASED [None]
  - POLYMENORRHOEA [None]
  - STRESS [None]
  - CONFUSIONAL STATE [None]
  - MYALGIA [None]
  - ASTHENIA [None]
  - URINARY RETENTION [None]
